FAERS Safety Report 4614622-6 (Version None)
Quarter: 2005Q2

REPORT INFORMATION
  Report Type: 
  Country: None (occurrence: None)
  Receive Date: 20050303
  Receipt Date: 20041203
  Transmission Date: 20051028
  Serious: Yes (Other)
  Sender: FDA-Public Use
  Company Number: WAES 0412USA00426

PATIENT
  Age: 65 Year
  Sex: Male

DRUGS (1)
  1. PRINIVIL [Suspect]
     Dosage: PO
     Route: 048

REACTIONS (1)
  - ANGIONEUROTIC OEDEMA [None]
